FAERS Safety Report 4339891-1 (Version None)
Quarter: 2004Q2

REPORT INFORMATION
  Report Type: 
  Country: None (occurrence: None)
  Receive Date: 20040414
  Receipt Date: 20040414
  Transmission Date: 20050107
  Serious: Yes (Other)
  Sender: FDA-Public Use
  Company Number: None

PATIENT
  Age: 9 Year
  Sex: Male
  Weight: 38.1022 kg

DRUGS (2)
  1. SINGULAIR [Suspect]
     Indication: ASTHMA
     Dosage: 10 MG DAILY
     Dates: start: 20040316, end: 20040319
  2. SINGULAIR [Suspect]
     Indication: RHINITIS
     Dosage: 10 MG DAILY
     Dates: start: 20040316, end: 20040319

REACTIONS (4)
  - AGGRESSION [None]
  - HYPOAESTHESIA [None]
  - MYALGIA [None]
  - PARAESTHESIA [None]
